FAERS Safety Report 5200518-8 (Version None)
Quarter: 2006Q4

REPORT INFORMATION
  Report Type: 
  Country: None (occurrence: None)
  Receive Date: 20061016
  Receipt Date: 20060911
  Transmission Date: 20070319
  Serious: No
  Sender: FDA-Public Use
  Company Number: 2006SP003246

PATIENT
  Age: 66 Year
  Sex: Female
  Weight: 108.8633 kg

DRUGS (7)
  1. LUNESTA [Suspect]
     Indication: INSOMNIA
     Dosage: 2 MG 1X ORAL
     Route: 048
     Dates: start: 20060908, end: 20060908
  2. PERCOCET [Concomitant]
  3. CALCIUM [Concomitant]
  4. POTASSIUM ACETATE [Concomitant]
  5. VITAMIN CAP [Concomitant]
  6. STOOL SOFTENER [Concomitant]
  7. CHLORTHALIDONE [Concomitant]

REACTIONS (1)
  - INITIAL INSOMNIA [None]
